FAERS Safety Report 7927438-X (Version None)
Quarter: 2011Q4

REPORT INFORMATION
  Report Type: 
  Country: None (occurrence: None)
  Receive Date: 20111118
  Receipt Date: 20110822
  Transmission Date: 20120403
  Serious: No
  Sender: FDA-Public Use
  Company Number: US-MYLANLABS-2011S1017661

PATIENT
  Age: 64 Year
  Sex: Female

DRUGS (4)
  1. MYCOPHENOLATE MOFETIL [Suspect]
     Indication: URTICARIA CHRONIC
     Route: 048
     Dates: start: 20110705, end: 20110802
  2. MYCOPHENOLATE MOFETIL [Suspect]
     Route: 048
     Dates: start: 20110803
  3. ZYFLO [Concomitant]
     Indication: URTICARIA
     Route: 048
     Dates: start: 20110201
  4. CLEMASTINE FUMARATE [Concomitant]
     Indication: URTICARIA
     Route: 048

REACTIONS (3)
  - ABDOMINAL PAIN [None]
  - REACTION TO DRUG EXCIPIENTS [None]
  - DIARRHOEA [None]
